FAERS Safety Report 7928431-3 (Version None)
Quarter: 2011Q4

REPORT INFORMATION
  Report Type: 
  Country: None (occurrence: None)
  Receive Date: 20111118
  Receipt Date: 20111114
  Transmission Date: 20120403
  Serious: Yes (Hospitalization, Other)
  Sender: FDA-Public Use
  Company Number: PHEH2011US009619

PATIENT
  Sex: Female

DRUGS (6)
  1. XANAX [Concomitant]
     Dosage: UNK UKN, UNK
  2. NEURONTIN [Concomitant]
     Dosage: UNK UKN, UNK
  3. AMANTADINE HCL [Concomitant]
     Dosage: UNK UKN, UNK
  4. VALIUM [Concomitant]
     Dosage: UNK UKN, UNK
  5. OMEPRAZOLE [Concomitant]
     Dosage: UNK UKN, UNK
  6. GILENYA [Suspect]
     Indication: MULTIPLE SCLEROSIS
     Dosage: 0.5 MG, QD
     Route: 048

REACTIONS (2)
  - CHEST DISCOMFORT [None]
  - BLOOD PRESSURE INCREASED [None]
